FAERS Safety Report 23291438 (Version 1)
Quarter: 2023Q4

REPORT INFORMATION
  Report Type: Spontaneous
  Country: CN (occurrence: CN)
  Receive Date: 20231213
  Receipt Date: 20231213
  Transmission Date: 20240109
  Serious: Yes (Hospitalization, Other)
  Sender: FDA-Public Use
  Company Number: CN-Accord-394767

PATIENT
  Age: 57 Year
  Sex: Female

DRUGS (3)
  1. TACROLIMUS [Interacting]
     Active Substance: TACROLIMUS
     Indication: Product used for unknown indication
     Dosage: 2 MG EVERY MORNING AND 2 MG EVERY EVENING
  2. NIRMATRELVIR [Interacting]
     Active Substance: NIRMATRELVIR
     Indication: COVID-19
  3. RITONAVIR [Interacting]
     Active Substance: RITONAVIR
     Indication: COVID-19

REACTIONS (13)
  - Toxicity to various agents [Unknown]
  - Drug interaction [Unknown]
  - Diarrhoea [Unknown]
  - Palpitations [Unknown]
  - Dizziness [Unknown]
  - Nausea [Unknown]
  - Self-medication [Unknown]
  - Abdominal distension [Unknown]
  - Vomiting [Unknown]
  - Abnormal dreams [Unknown]
  - Somnolence [Unknown]
  - Headache [Unknown]
  - Electrocardiogram QT prolonged [Unknown]
